FAERS Safety Report 18295365 (Version 1)
Quarter: 2020Q3

REPORT INFORMATION
  Report Type: Spontaneous
  Country: US (occurrence: US)
  Receive Date: 20200922
  Receipt Date: 20200922
  Transmission Date: 20201103
  Serious: No
  Sender: FDA-Public Use
  Company Number: US-GLAXOSMITHKLINE-US2020188326

PATIENT

DRUGS (27)
  1. CLINDAMYCIN. [Suspect]
     Active Substance: CLINDAMYCIN
     Indication: RASH
     Dosage: UNK
     Route: 065
  2. EFFEXOR [Suspect]
     Active Substance: VENLAFAXINE HYDROCHLORIDE
     Indication: PRODUCT USED FOR UNKNOWN INDICATION
     Dosage: 75 MG, QD, (EXTENDED RELEASE 24 HRS)
     Route: 065
     Dates: start: 20200702
  3. CIPRO [Concomitant]
     Active Substance: CIPROFLOXACIN HYDROCHLORIDE
     Indication: URTICARIA
     Dosage: UNK
     Route: 065
  4. GUAIPHENESIN [Concomitant]
     Active Substance: GUAIFENESIN
     Indication: PRURITUS
     Dosage: UNK
     Route: 065
  5. NORCO [Concomitant]
     Active Substance: ACETAMINOPHEN\HYDROCODONE BITARTRATE
     Indication: PALPITATIONS
  6. VOLTAREN [Suspect]
     Active Substance: DICLOFENAC SODIUM
     Indication: NAUSEA
     Dosage: UNK
     Route: 065
  7. PREDNISONE. [Concomitant]
     Active Substance: PREDNISONE
     Indication: PRODUCT USED FOR UNKNOWN INDICATION
     Dosage: UNK
     Route: 065
  8. DARVOCET A500 [Concomitant]
     Active Substance: ACETAMINOPHEN\PROPOXYPHENE NAPSYLATE
     Indication: PALPITATIONS
  9. MOBIC [Concomitant]
     Active Substance: MELOXICAM
     Indication: PALPITATIONS
     Dosage: UNK
     Route: 065
  10. PREPARATION H (COCOA BUTTER + PHENYLEPHRINE HYDROCHLORIDE) [Concomitant]
     Indication: PRURITUS
     Dosage: UNK
     Route: 065
  11. PREPARATION H (COCOA BUTTER + PHENYLEPHRINE HYDROCHLORIDE) [Concomitant]
     Indication: PALPITATIONS
  12. TIZANIDINE. [Concomitant]
     Active Substance: TIZANIDINE
     Indication: PRODUCT USED FOR UNKNOWN INDICATION
     Dosage: UNK
     Route: 065
  13. FLECTOR [Concomitant]
     Active Substance: DICLOFENAC EPOLAMINE
     Indication: PRODUCT USED FOR UNKNOWN INDICATION
     Dosage: UNK, (1.3% PATCH 12 HOUR)
     Route: 065
  14. DARVOCET A500 [Concomitant]
     Active Substance: ACETAMINOPHEN\PROPOXYPHENE NAPSYLATE
     Indication: URTICARIA
     Dosage: UNK
     Route: 065
  15. TYLENOL [Concomitant]
     Active Substance: ACETAMINOPHEN
     Indication: PALPITATIONS
  16. PHENYLEPHRINE [Concomitant]
     Active Substance: PHENYLEPHRINE HYDROCHLORIDE
     Indication: NAUSEA
  17. PERCOCET [Concomitant]
     Active Substance: ACETAMINOPHEN\OXYCODONE HYDROCHLORIDE
     Indication: URTICARIA
     Dosage: UNK
     Route: 065
  18. PERCOCET [Concomitant]
     Active Substance: ACETAMINOPHEN\OXYCODONE HYDROCHLORIDE
     Indication: PALPITATIONS
  19. AMOXICILLIN. [Concomitant]
     Active Substance: AMOXICILLIN
     Indication: DIARRHOEA
     Dosage: UNK
     Route: 065
  20. TUSSIN DM [Concomitant]
     Active Substance: DEXTROMETHORPHAN HYDROBROMIDE\GUAIFENESIN
     Indication: PRURITUS
     Dosage: UNK
     Route: 065
  21. PHENYLEPHRINE [Concomitant]
     Active Substance: PHENYLEPHRINE HYDROCHLORIDE
     Indication: URTICARIA
     Dosage: UNK
     Route: 065
  22. THERAFLU NOS [Concomitant]
     Active Substance: ACETAMINOPHEN AND OR DEXTROMETHORPHAN AND OR DIPHENHYDRAMINE AND OR GUAIFENESIN AND OR PHENYLEPHRINE AND OR PSEUDOEPHEDRINE
     Indication: NAUSEA
     Dosage: UNK
     Route: 065
  23. THERAFLU NOS [Concomitant]
     Active Substance: ACETAMINOPHEN AND OR DEXTROMETHORPHAN AND OR DIPHENHYDRAMINE AND OR GUAIFENESIN AND OR PHENYLEPHRINE AND OR PSEUDOEPHEDRINE
     Indication: PRURITUS
  24. MUCINEX [Concomitant]
     Active Substance: GUAIFENESIN
     Indication: URTICARIA
     Dosage: UNK
     Route: 065
  25. PREPARATION H (COCOA BUTTER + PHENYLEPHRINE HYDROCHLORIDE) [Concomitant]
     Indication: NAUSEA
  26. TYLENOL [Concomitant]
     Active Substance: ACETAMINOPHEN
     Indication: URTICARIA
     Dosage: UNK
     Route: 065
  27. NORCO [Concomitant]
     Active Substance: ACETAMINOPHEN\HYDROCODONE BITARTRATE
     Indication: URTICARIA
     Dosage: UNK
     Route: 065

REACTIONS (10)
  - Pruritus [Unknown]
  - Abdominal pain [Unknown]
  - Palpitations [Unknown]
  - Genital pain [Unknown]
  - Hypersensitivity [Unknown]
  - Nausea [Unknown]
  - Rash [Unknown]
  - Diarrhoea [Unknown]
  - Urticaria [Unknown]
  - Pelvic pain [Unknown]
